FAERS Safety Report 8005097-8 (Version None)
Quarter: 2011Q4

REPORT INFORMATION
  Report Type: 
  Country: None (occurrence: None)
  Receive Date: 20111223
  Receipt Date: 20111209
  Transmission Date: 20120403
  Serious: Yes (Hospitalization, Other)
  Sender: FDA-Public Use
  Company Number: PHHY2011CA100124

PATIENT
  Sex: Male

DRUGS (1)
  1. SANDOSTATIN LAR [Suspect]
     Indication: CARCINOID TUMOUR
     Dosage: 30 MG, EVERY 4 WEEKS
     Route: 030
     Dates: start: 20060111

REACTIONS (10)
  - UNRESPONSIVE TO STIMULI [None]
  - PALLOR [None]
  - DYSPNOEA [None]
  - VOMITING [None]
  - HYPOPNOEA [None]
  - EYE MOVEMENT DISORDER [None]
  - BLOOD PRESSURE INCREASED [None]
  - INJECTION SITE DISCOMFORT [None]
  - SKIN WARM [None]
  - PARAESTHESIA [None]
